FAERS Safety Report 13066448 (Version 1)
Quarter: 2016Q4

REPORT INFORMATION
  Report Type: Spontaneous
  Country: GB (occurrence: GB)
  Receive Date: 20161227
  Receipt Date: 20161227
  Transmission Date: 20170207
  Serious: Yes (Other)
  Sender: FDA-Public Use
  Company Number: GB-SA-2016SA230909

PATIENT
  Age: 65 Year
  Sex: Female
  Weight: 62 kg

DRUGS (26)
  1. MORPHINE SULFATE. [Concomitant]
     Active Substance: MORPHINE SULFATE
     Dates: start: 20160907
  2. LAXIDO [Concomitant]
     Active Substance: POLYETHYLENE GLYCOL 3350\POTASSIUM CHLORIDE\SODIUM BICARBONATE\SODIUM CHLORIDE
     Dosage: TWICE A DAY.
     Dates: start: 20160512, end: 20161125
  3. BISACODYL. [Concomitant]
     Active Substance: BISACODYL
     Dosage: 1 -2 TABS TO BE TAKEN AT NIGHT.
     Dates: start: 20160907, end: 20160908
  4. GLICLAZIDE [Concomitant]
     Active Substance: GLICLAZIDE
     Dosage: IN MORNING AND IN EVENING.
     Dates: start: 20161126
  5. LANSOPRAZOLE. [Concomitant]
     Active Substance: LANSOPRAZOLE
     Dosage: AT 8AM
     Dates: start: 20160922, end: 20160923
  6. NITROFURANTOIN. [Concomitant]
     Active Substance: NITROFURANTOIN
     Dosage: AT NIGHT AS PER UROLOGIST.
     Dates: start: 20160907, end: 20161125
  7. SENNA [Concomitant]
     Active Substance: SENNA LEAF\SENNOSIDES\SENNOSIDES A AND B
     Dates: start: 20160908, end: 20161125
  8. GLYCEROL [Concomitant]
     Active Substance: GLYCERIN
     Indication: CONSTIPATION
     Dates: start: 20160908, end: 20161125
  9. METFORMIN [Concomitant]
     Active Substance: METFORMIN HYDROCHLORIDE
     Dosage: AT 8AM AND AT 8PM
     Dates: start: 20160922, end: 20160923
  10. MICRALAX [Concomitant]
     Dosage: ADMINISTER THE CONTENTS OF ONE MICRO-ENEMA RECT...
     Dates: start: 20160908, end: 20161021
  11. VENTOLIN [Concomitant]
     Active Substance: ALBUTEROL SULFATE
     Dosage: 2 PUFFS TO BE INHALED AS REQUIRED UP TO FOUR TI...
     Route: 055
     Dates: start: 20160922, end: 20160923
  12. FUROSEMIDE. [Concomitant]
     Active Substance: FUROSEMIDE
     Dates: start: 20160627
  13. NEFOPAM [Concomitant]
     Active Substance: NEFOPAM
     Dates: start: 20160627, end: 20161125
  14. SPIRONOLACTONE. [Concomitant]
     Active Substance: SPIRONOLACTONE
     Dosage: EACH MORNING.
     Dates: start: 20160912, end: 20161125
  15. CLOPIDOGREL BISULFATE. [Suspect]
     Active Substance: CLOPIDOGREL BISULFATE
     Route: 065
     Dates: start: 20161207
  16. CLENIL MODULITE [Concomitant]
     Active Substance: BECLOMETHASONE DIPROPIONATE
     Dosage: PUFF.
     Dates: start: 20160627, end: 20160908
  17. FOSTAIR [Concomitant]
     Active Substance: BECLOMETHASONE\FORMOTEROL
     Dosage: PUFFS.
     Route: 055
     Dates: start: 20160606
  18. LORAZEPAM. [Concomitant]
     Active Substance: LORAZEPAM
     Indication: AGITATION
     Dosage: TAKE HALF A TABLET WHEN REQUIRED IF AGITATED/AG...
     Dates: start: 20160907, end: 20161125
  19. LOSARTAN. [Concomitant]
     Active Substance: LOSARTAN
     Dosage: AS PER SPECIALIST.
     Dates: start: 20160630, end: 20161125
  20. MATRIFEN [Concomitant]
     Active Substance: FENTANYL
     Dosage: PATCH.
     Dates: start: 20160907
  21. ORAMORPH [Concomitant]
     Active Substance: MORPHINE SULFATE
     Dosage: 5ML TO BE TAKEN ORALLY FOUR TIMES A DAY AS PER ...
     Route: 048
     Dates: start: 20160627, end: 20161125
  22. PARACETAMOL [Concomitant]
     Active Substance: ACETAMINOPHEN
     Dosage: ONE TO TWO TABLETS TO BE TAKEN EVERY FOUR TO SI...
     Dates: start: 20160907, end: 20161207
  23. RISPERIDONE. [Concomitant]
     Active Substance: RISPERIDONE
     Dosage: AT 8AM AS PER SPECIALIST.
     Dates: start: 20160503, end: 20161125
  24. BISOPROLOL [Concomitant]
     Active Substance: BISOPROLOL
     Dosage: EACH MORNING.
     Dates: start: 20160331
  25. HALOPERIDOL. [Concomitant]
     Active Substance: HALOPERIDOL
     Dosage: TWICE DAILY.
     Dates: start: 20161126
  26. QVAR [Concomitant]
     Active Substance: BECLOMETHASONE DIPROPIONATE
     Dosage: PUFFS.
     Route: 055
     Dates: start: 20160908, end: 20161125

REACTIONS (1)
  - Drug intolerance [Unknown]

NARRATIVE: CASE EVENT DATE: 20161207
